FAERS Safety Report 6416007-9 (Version None)
Quarter: 2009Q4

REPORT INFORMATION
  Report Type: 
  Country: None (occurrence: None)
  Receive Date: 20091027
  Receipt Date: 20091027
  Transmission Date: 20100525
  Serious: Yes (Hospitalization)
  Sender: FDA-Public Use
  Company Number: US-ABBOTT-09P-163-0603133-00

PATIENT
  Sex: Female
  Weight: 56.75 kg

DRUGS (25)
  1. HUMIRA [Suspect]
     Indication: RHEUMATOID ARTHRITIS
     Route: 058
     Dates: start: 20090801, end: 20090922
  2. OLUX [Concomitant]
     Indication: PSORIASIS
     Route: 061
  3. CLOBETASOL PROPIONATE [Concomitant]
     Indication: PSORIASIS
     Route: 061
  4. ALLEGRA [Concomitant]
     Indication: SEASONAL ALLERGY
     Route: 048
  5. ALBUTEROL [Concomitant]
     Indication: DRUG USE FOR UNKNOWN INDICATION
     Route: 055
  6. ADVAIR DISKUS 100/50 [Concomitant]
     Indication: DRUG USE FOR UNKNOWN INDICATION
     Route: 055
  7. SPIRIVA [Concomitant]
     Indication: DRUG USE FOR UNKNOWN INDICATION
     Route: 055
  8. DEMEROL [Concomitant]
     Indication: PAIN
     Route: 048
  9. NEXIUM [Concomitant]
     Indication: ULCER
     Dosage: 1-2 DAILY
     Route: 048
  10. IMURAN [Concomitant]
     Indication: DRUG USE FOR UNKNOWN INDICATION
     Dosage: QD
     Route: 048
  11. NEURONTIN [Concomitant]
     Indication: FIBROMYALGIA
     Route: 048
  12. FLECTOR [Concomitant]
     Indication: PAIN
     Dosage: PATCH
     Route: 061
  13. PHAZYME [Concomitant]
     Indication: DRUG USE FOR UNKNOWN INDICATION
     Route: 048
  14. CITRACAL-D [Concomitant]
     Indication: VITAMIN SUPPLEMENTATION
     Route: 048
  15. BUSPAR [Concomitant]
     Indication: DRUG USE FOR UNKNOWN INDICATION
     Route: 048
  16. DIAZEPAM [Concomitant]
     Indication: DRUG USE FOR UNKNOWN INDICATION
     Route: 048
  17. MULTI-VITAMINS [Concomitant]
     Indication: VITAMIN SUPPLEMENTATION
     Route: 048
  18. EVOXAC [Concomitant]
     Indication: DRUG USE FOR UNKNOWN INDICATION
     Route: 048
  19. COD LIVER OIL [Concomitant]
     Indication: MINERAL SUPPLEMENTATION
     Route: 048
  20. VITAMIN E [Concomitant]
     Indication: VITAMIN SUPPLEMENTATION
     Route: 048
  21. ASCORBIC ACID [Concomitant]
     Indication: VITAMIN SUPPLEMENTATION
     Route: 048
  22. REFRESH TEARS [Concomitant]
     Indication: DRUG USE FOR UNKNOWN INDICATION
     Route: 047
  23. WELLBUTRIN [Concomitant]
     Indication: DRUG USE FOR UNKNOWN INDICATION
     Route: 048
  24. JANUVIA [Concomitant]
     Indication: DIABETES MELLITUS
     Route: 048
  25. LANTUS [Concomitant]
     Indication: DIABETES MELLITUS
     Dosage: PM
     Route: 058

REACTIONS (4)
  - DYSARTHRIA [None]
  - ERYTHEMA [None]
  - EYE ROLLING [None]
  - TRANSIENT ISCHAEMIC ATTACK [None]
